FAERS Safety Report 24707109 (Version 1)
Quarter: 2024Q4

REPORT INFORMATION
  Report Type: Spontaneous
  Country: TW (occurrence: TW)
  Receive Date: 20241206
  Receipt Date: 20241206
  Transmission Date: 20250114
  Serious: Yes (Death, Other)
  Sender: Vantive US Healthcare
  Company Number: TW-VANTIVE-2024VAN021502

PATIENT
  Age: 89 Year
  Sex: Female
  Weight: 61.7 kg

DRUGS (29)
  1. SODIUM CHLORIDE\SODIUM CITRATE, UNSPECIFIED FORM [Suspect]
     Active Substance: SODIUM CHLORIDE\SODIUM CITRATE, UNSPECIFIED FORM
     Indication: Continuous haemodiafiltration
     Dosage: 5 LITER ONCE EVER
     Route: 050
     Dates: start: 20240723, end: 20240726
  2. DEXTROSE\LACTIC ACID\MAGNESIUM CL\POTASSIUM CL\SODIUM BICARBONATE\SODI [Suspect]
     Active Substance: DEXTROSE\LACTIC ACID\MAGNESIUM CHLORIDE\POTASSIUM CHLORIDE\SODIUM BICARBONATE\SODIUM CHLORIDE
     Indication: Acute kidney injury
     Dosage: UNK
     Route: 065
     Dates: start: 20240722, end: 20240723
  3. DEXTROSE\LACTIC ACID\MAGNESIUM CL\POTASSIUM CL\SODIUM BICARBONATE\SODI [Suspect]
     Active Substance: DEXTROSE\LACTIC ACID\MAGNESIUM CHLORIDE\POTASSIUM CHLORIDE\SODIUM BICARBONATE\SODIUM CHLORIDE
     Dosage: UNK
     Route: 065
     Dates: start: 20240726
  4. HEPARIN [Suspect]
     Active Substance: HEPARIN SODIUM
     Indication: Anticoagulant therapy
     Dosage: UNK
     Route: 065
     Dates: start: 20240722, end: 20240723
  5. CALGLON [Concomitant]
     Indication: Calcium deficiency
     Dosage: ONCE EVERY 0.0 (DETAILS NOT REPORTED)
     Route: 042
     Dates: start: 20240723, end: 20240726
  6. ACTEIN [Concomitant]
     Indication: Productive cough
     Dosage: 1200 MG ONCE EVERY 0.5 DAYS
     Route: 048
     Dates: start: 20240722, end: 20240727
  7. GENURSO [Concomitant]
     Indication: Liver injury
     Dosage: 100 MG LOZENGES ONCE EVERY 0.33 DAYS
     Route: 048
     Dates: start: 20240722, end: 20240727
  8. TAIGEXYN [Concomitant]
     Indication: Evidence based treatment
     Dosage: 500 MG ONCE EVERY 2 DAYS
     Route: 042
     Dates: start: 20240722, end: 20240727
  9. LANSOPRAZOLE [Concomitant]
     Active Substance: LANSOPRAZOLE
     Indication: Gastrointestinal haemorrhage
     Dosage: 30 MG ONCE EVERY 12 HOURS
     Route: 042
     Dates: start: 20240722, end: 20240727
  10. FEBUXOSTAT [Concomitant]
     Active Substance: FEBUXOSTAT
     Indication: Hyperuricaemia
     Dosage: 80 MG ONCE EVERY 1 DAY
     Route: 048
     Dates: start: 20240722, end: 20240726
  11. LIPITOR [Concomitant]
     Active Substance: ATORVASTATIN CALCIUM
     Indication: Blood cholesterol increased
     Dosage: 20 MG ONCE EVERY 1 DAY
     Route: 048
     Dates: start: 20240722, end: 20240727
  12. GABEXATE MESYLATE [Concomitant]
     Active Substance: GABEXATE MESYLATE
     Indication: Disseminated intravascular coagulation
     Dosage: 2000 MG ONCE EVERY 1 DAYS
     Route: 042
     Dates: start: 20240724, end: 20240727
  13. HYDROCORTISONE [Concomitant]
     Active Substance: HYDROCORTISONE
     Indication: Inflammation
     Dosage: 50 MG ONCE EVERY 6 HOURS
     Route: 042
     Dates: start: 20240724, end: 20240727
  14. LEVOTHYROXINE [Concomitant]
     Active Substance: LEVOTHYROXINE
     Indication: Hypothyroidism
     Dosage: 100 UG ONCE EVERY 1 DAY
     Route: 048
     Dates: start: 20240725, end: 20240727
  15. GASLAN [Concomitant]
     Indication: Flatulence
     Dosage: 40 UG ONCE EVERY 0.25 DAYS
     Route: 048
     Dates: start: 20240726, end: 20240727
  16. PULIN [Concomitant]
     Indication: Dyspepsia
     Dosage: 5 MG ONCE EVERY 12 HOURS
     Route: 042
     Dates: start: 20240726, end: 20240727
  17. NOREPINEPHRINE [Concomitant]
     Active Substance: NOREPINEPHRINE\NOREPINEPHRINE BITARTRATE
     Indication: Hypotension
     Dosage: 16 MG EVERY 0.0 (DETAILS NOT SPECIFIED) , AS NEEDED
     Route: 042
     Dates: start: 20240725, end: 20240727
  18. PITRESSIN [Concomitant]
     Active Substance: VASOPRESSIN
     Indication: Hypotension
     Dosage: 60 IU IN N/S 100 ML WITH PUMP RUN 3 ML/HR
     Route: 042
     Dates: start: 20240726
  19. PITRESSIN [Concomitant]
     Active Substance: VASOPRESSIN
     Dosage: 4 ML
     Route: 042
     Dates: start: 20240727, end: 20240727
  20. Vitagen [Concomitant]
     Dosage: 100 ML (5AMP) IVD STAT
     Route: 065
  21. ACTRAPID [Concomitant]
     Active Substance: INSULIN HUMAN
     Dosage: 10 IU IVD STAT
     Route: 042
  22. ROLIKAN [Concomitant]
     Dosage: 100 ML (5 AMP) IVD STAT
     Route: 042
  23. LEVOPHED [Concomitant]
     Active Substance: NOREPINEPHRINE BITARTRATE
     Dosage: 16 MG IN D5W 250 ML WITH PUMP RUN 20 ML/HR
     Route: 065
     Dates: start: 20240726
  24. LEVOPHED [Concomitant]
     Active Substance: NOREPINEPHRINE BITARTRATE
     Dosage: 16 MG IN D5W 250 ML WITH PUMP RUN 30 ML/HR
     Route: 065
     Dates: start: 20240726
  25. LEVOPHED [Concomitant]
     Active Substance: NOREPINEPHRINE BITARTRATE
     Dosage: 40 ML/HR
     Route: 065
     Dates: start: 20240727
  26. EASYDOPA [Concomitant]
     Indication: Hypotension
     Dosage: 400 MG/250 ML 6 ML/HR WITH PUMP
     Route: 065
     Dates: start: 20240725
  27. EASYDOPA [Concomitant]
     Dosage: 400 MG/250 ML TO 15 ML/HR WITH PUMP
     Route: 065
     Dates: start: 20240726
  28. EASYDOPA [Concomitant]
     Dosage: 400 MG/250 ML 30 ML/HR WITH PUMP
     Route: 065
     Dates: start: 20240726, end: 20240726
  29. EPINEPHRINE [Concomitant]
     Active Substance: EPINEPHRINE
     Indication: Hypotension
     Dosage: 10 MG IN N/S 90 ML WITH PUMP RUN 20 ML/HR
     Route: 065
     Dates: start: 20240727

REACTIONS (3)
  - Death [Fatal]
  - Thrombocytopenia [Unknown]
  - Pulseless electrical activity [Unknown]

NARRATIVE: CASE EVENT DATE: 20240723
